FAERS Safety Report 25371003 (Version 2)
Quarter: 2025Q3

REPORT INFORMATION
  Report Type: Spontaneous
  Country: US (occurrence: US)
  Receive Date: 20250528
  Receipt Date: 20250715
  Transmission Date: 20251021
  Serious: No
  Sender: GLAUKOS
  Company Number: US-GLK-000644

PATIENT

DRUGS (1)
  1. IDOSE TR [Suspect]
     Active Substance: TRAVOPROST
     Indication: Product used for unknown indication
     Route: 047
     Dates: start: 20250506, end: 20250506

REACTIONS (1)
  - Corneal oedema [Recovered/Resolved]

NARRATIVE: CASE EVENT DATE: 20250506
